FAERS Safety Report 14923987 (Version 1)
Quarter: 2018Q2

REPORT INFORMATION
  Report Type: Spontaneous
  Country: NO (occurrence: NO)
  Receive Date: 20180522
  Receipt Date: 20180522
  Transmission Date: 20180711
  Serious: Yes (Hospitalization)
  Sender: FDA-Public Use
  Company Number: NO-ELI_LILLY_AND_COMPANY-NO201805007012

PATIENT
  Age: 84 Year
  Sex: Female

DRUGS (12)
  1. BETMIGA [Interacting]
     Active Substance: MIRABEGRON
     Indication: URINARY INCONTINENCE
     Dosage: 50 MG, DAILY
     Route: 048
     Dates: end: 20180417
  2. ALBYL-E [Concomitant]
     Active Substance: ASPIRIN\MAGNESIUM OXIDE
     Indication: ANGINA UNSTABLE
     Dosage: 75 MG, DAILY
     Route: 048
     Dates: start: 200503
  3. ADALAT [Concomitant]
     Active Substance: NIFEDIPINE
     Indication: HYPERTENSION
     Dosage: 20 MG, DAILY
     Route: 048
     Dates: end: 20180417
  4. TRIATEC                            /00885601/ [Concomitant]
     Active Substance: RAMIPRIL
     Indication: CARDIAC FAILURE
  5. ZYPREXA [Interacting]
     Active Substance: OLANZAPINE
     Indication: HALLUCINATION
  6. ZYPREXA [Suspect]
     Active Substance: OLANZAPINE
     Indication: RESTLESSNESS
     Dosage: 5 MG/KG, DAILY
     Route: 048
     Dates: start: 20180413, end: 20180416
  7. LEVAXIN [Concomitant]
     Active Substance: LEVOTHYROXINE SODIUM
     Indication: HYPOTHYROIDISM
     Dosage: 100 UG, OTHER
     Route: 048
  8. BRINTELLIX [Suspect]
     Active Substance: VORTIOXETINE HYDROBROMIDE
     Indication: DEPRESSION
     Dosage: 10 MG, DAILY
     Route: 048
     Dates: start: 20170519, end: 20180418
  9. BRINTELLIX [Suspect]
     Active Substance: VORTIOXETINE HYDROBROMIDE
     Indication: AMNESIA
  10. SIMVASTATIN. [Concomitant]
     Active Substance: SIMVASTATIN
     Indication: CEREBROVASCULAR ACCIDENT PROPHYLAXIS
     Dosage: 20 MG/KG, DAILY
     Route: 048
  11. DIVISUN [Concomitant]
     Indication: VITAMIN D DEFICIENCY
     Dosage: 800 IU, DAILY
     Route: 048
  12. TRIATEC                            /00885601/ [Concomitant]
     Active Substance: RAMIPRIL
     Indication: CARDIAC FAILURE
     Dosage: 2.5 MG, DAILY
     Route: 048
     Dates: start: 201802

REACTIONS (2)
  - Drug interaction [Recovered/Resolved with Sequelae]
  - Epilepsy [Recovered/Resolved with Sequelae]

NARRATIVE: CASE EVENT DATE: 20180416
